FAERS Safety Report 13535411 (Version 2)
Quarter: 2017Q2

REPORT INFORMATION
  Report Type: Spontaneous
  Country: US (occurrence: US)
  Receive Date: 20170511
  Receipt Date: 20170524
  Transmission Date: 20170830
  Serious: Yes (Other)
  Sender: FDA-Public Use
  Company Number: US-SUN PHARMACEUTICAL INDUSTRIES LTD-2017US-140162

PATIENT
  Sex: Male

DRUGS (1)
  1. ABSORICA [Suspect]
     Active Substance: ISOTRETINOIN
     Indication: ACNE
     Dosage: 70 MG, BID
     Route: 065
     Dates: start: 20170202

REACTIONS (2)
  - Excessive granulation tissue [Unknown]
  - Scab [Unknown]

NARRATIVE: CASE EVENT DATE: 2017
